FAERS Safety Report 9043164 (Version 1)
Quarter: 2013Q1

REPORT INFORMATION
  Report Type: Report from Study
  Country: US (occurrence: US)
  Receive Date: 20130129
  Receipt Date: 20130129
  Transmission Date: 20140127
  Serious: No
  Sender: FDA-Public Use
  Company Number: US-ABBOTT-12P-163-0893643-00

PATIENT
  Age: 62 Year
  Sex: Female

DRUGS (11)
  1. HUMIRA 40 MG/0.8 ML PEN [Suspect]
     Indication: CROHN^S DISEASE
     Route: 058
     Dates: start: 20111214, end: 20120208
  2. POTASSIUM [Concomitant]
     Indication: PRODUCT USED FOR UNKNOWN INDICATION
  3. ENTOCORT [Concomitant]
     Indication: PRODUCT USED FOR UNKNOWN INDICATION
  4. ENTOCORT [Concomitant]
     Dosage: 3 MG 2 TABS PO QD
  5. ENTOCORT [Concomitant]
  6. INH [Concomitant]
     Indication: TUBERCULOSIS
  7. VITAMIN B 6 [Concomitant]
     Indication: PRODUCT USED FOR UNKNOWN INDICATION
  8. WELLBUTRIN [Concomitant]
     Indication: DEPRESSION
  9. ATENOLOL [Concomitant]
     Indication: HYPERTENSION
     Dosage: 50/25 DAILY
  10. TRAMADOL [Concomitant]
     Indication: PAIN
  11. VICODIN [Concomitant]
     Indication: PAIN

REACTIONS (10)
  - Injection site reaction [Recovered/Resolved]
  - Injection site pain [Recovered/Resolved]
  - Injection site erythema [Recovered/Resolved]
  - Injection site induration [Recovered/Resolved]
  - Injection site swelling [Recovered/Resolved]
  - Injection site papule [Recovered/Resolved]
  - Injection site pain [Recovered/Resolved]
  - Injection site discolouration [Recovered/Resolved]
  - Paraesthesia oral [Unknown]
  - Crohn^s disease [Unknown]
